FAERS Safety Report 5258316-5 (Version None)
Quarter: 2007Q1

REPORT INFORMATION
  Report Type: 
  Country: None (occurrence: None)
  Receive Date: 20070308
  Receipt Date: 20070227
  Transmission Date: 20070707
  Serious: Yes (Hospitalization)
  Sender: FDA-Public Use
  Company Number: JP-JNJFOC-20070300661

PATIENT
  Age: 59 Year
  Sex: Male

DRUGS (7)
  1. LEVOFLOXACIN [Suspect]
     Route: 048
  2. LEVOFLOXACIN [Suspect]
     Route: 048
  3. LEVOFLOXACIN [Suspect]
     Indication: DRUG USE FOR UNKNOWN INDICATION
     Route: 048
  4. DEPAKENE [Suspect]
     Indication: DRUG USE FOR UNKNOWN INDICATION
     Route: 065
  5. LINTON [Concomitant]
     Route: 065
  6. HARNAL D [Concomitant]
     Route: 065
  7. MAGMITT [Concomitant]
     Route: 065

REACTIONS (3)
  - ERYTHEMA [None]
  - NEUROBLASTOMA [None]
  - PARANEOPLASTIC SYNDROME [None]
